FAERS Safety Report 12789165 (Version 1)
Quarter: 2016Q3

REPORT INFORMATION
  Report Type: Report from Study
  Country: US (occurrence: US)
  Receive Date: 20160928
  Receipt Date: 20160928
  Transmission Date: 20161109
  Serious: Yes (Other)
  Sender: FDA-Public Use
  Company Number: US-ABBVIE-16P-163-1737124-00

PATIENT
  Sex: Male

DRUGS (1)
  1. ANDROGEL [Suspect]
     Active Substance: TESTOSTERONE
     Indication: PRODUCT USED FOR UNKNOWN INDICATION
     Route: 061

REACTIONS (5)
  - Hypothalamo-pituitary disorder [Unknown]
  - Cerebrovascular accident [Unknown]
  - Cerebral disorder [Unknown]
  - Neurogenic bowel [Unknown]
  - Blood glucose abnormal [Unknown]
